FAERS Safety Report 5734858-0 (Version None)
Quarter: 2008Q2

REPORT INFORMATION
  Report Type: 
  Country: None (occurrence: None)
  Receive Date: 20080512
  Receipt Date: 20080506
  Transmission Date: 20081010
  Serious: Yes (Hospitalization)
  Sender: FDA-Public Use
  Company Number: A0717889A

PATIENT
  Age: 50 Year
  Sex: Female

DRUGS (4)
  1. FLOLAN [Suspect]
     Indication: DRUG USE FOR UNKNOWN INDICATION
     Dates: start: 20080101
  2. STARLIX [Concomitant]
  3. SYNTHROID [Concomitant]
  4. CEFTIN [Concomitant]
     Route: 048

REACTIONS (3)
  - PYREXIA [None]
  - VISION BLURRED [None]
  - VISUAL DISTURBANCE [None]
